FAERS Safety Report 24825192 (Version 1)
Quarter: 2025Q1

REPORT INFORMATION
  Report Type: Spontaneous
  Country: US (occurrence: None)
  Receive Date: 20250109
  Receipt Date: 20250109
  Transmission Date: 20250409
  Serious: No
  Sender: FDA-CTU
  Company Number: None

PATIENT

DRUGS (1)
  1. PHENYTOIN [Suspect]
     Active Substance: PHENYTOIN

REACTIONS (3)
  - Anxiety [None]
  - Diarrhoea [None]
  - Alopecia [None]
